FAERS Safety Report 16817152 (Version 1)
Quarter: 2019Q3

REPORT INFORMATION
  Report Type: Report from Study
  Country: US (occurrence: US)
  Receive Date: 20190917
  Receipt Date: 20190917
  Transmission Date: 20191005
  Serious: No
  Sender: FDA-Public Use
  Company Number: US-BEH-2019106292

PATIENT
  Age: 37 Year
  Sex: Female
  Weight: 95.24 kg

DRUGS (2)
  1. HAEGARDA [Suspect]
     Active Substance: HUMAN C1-ESTERASE INHIBITOR
     Indication: PROPHYLAXIS
  2. HAEGARDA [Suspect]
     Active Substance: HUMAN C1-ESTERASE INHIBITOR
     Indication: HEREDITARY ANGIOEDEMA
     Dosage: 5400, UNITS REPORTED AS 2000 AND 3000, BIW
     Route: 065

REACTIONS (1)
  - Food allergy [Unknown]

NARRATIVE: CASE EVENT DATE: 20190817
